FAERS Safety Report 5590369-7 (Version None)
Quarter: 2008Q1

REPORT INFORMATION
  Report Type: 
  Country: None (occurrence: None)
  Receive Date: 20080114
  Receipt Date: 20080109
  Transmission Date: 20080703
  Serious: Yes (Hospitalization)
  Sender: FDA-Public Use
  Company Number: ES-ROXANE LABORATORIES, INC-2007-DE-07525GD

PATIENT
  Age: 58 Year
  Sex: Female

DRUGS (6)
  1. PARACETAMOL [Suspect]
     Indication: OSTEOARTHRITIS
  2. PAROXETINE [Suspect]
  3. LORAZEPAM [Suspect]
  4. VALERIAN [Suspect]
  5. ATENOLOL [Suspect]
  6. HYDROXYZINE [Suspect]

REACTIONS (1)
  - HEPATOCELLULAR INJURY [None]
